FAERS Safety Report 19423218 (Version 1)
Quarter: 2021Q2

REPORT INFORMATION
  Report Type: Spontaneous
  Country: US (occurrence: US)
  Receive Date: 20210616
  Receipt Date: 20210616
  Transmission Date: 20210717
  Serious: Yes (Hospitalization)
  Sender: FDA-Public Use
  Company Number: None

PATIENT
  Sex: Male

DRUGS (1)
  1. COSENTYX [Suspect]
     Active Substance: SECUKINUMAB
     Indication: HIDRADENITIS
     Route: 058
     Dates: start: 20210118

REACTIONS (3)
  - Pancreatitis [None]
  - Cholelithiasis [None]
  - Therapy interrupted [None]

NARRATIVE: CASE EVENT DATE: 20210510
